FAERS Safety Report 7396707-7 (Version None)
Quarter: 2011Q1

REPORT INFORMATION
  Report Type: 
  Country: None (occurrence: None)
  Receive Date: 20110331
  Receipt Date: 20110331
  Transmission Date: 20110831
  Serious: No
  Sender: FDA-Public Use
  Company Number: None

PATIENT
  Age: 57 Year
  Sex: Male
  Weight: 126.1 kg

DRUGS (1)
  1. METFORMIN HCL [Suspect]
     Indication: GLUCOSE TOLERANCE IMPAIRED
     Dosage: 2 @ SUPPERTIME DAILY PO
     Route: 048
     Dates: start: 20070425, end: 20080421

REACTIONS (5)
  - MYALGIA [None]
  - ASTHENIA [None]
  - LACTIC ACIDOSIS [None]
  - ERECTILE DYSFUNCTION [None]
  - JOINT STIFFNESS [None]
